FAERS Safety Report 8893515 (Version 1)
Quarter: 2012Q4

REPORT INFORMATION
  Report Type: 
  Country: US (occurrence: US)
  Receive Date: 20121107
  Receipt Date: 20121107
  Transmission Date: 20130627
  Serious: No
  Sender: FDA-Public Use
  Company Number: US-AMGEN-USASP2011052782

PATIENT
  Sex: Female

DRUGS (10)
  1. ENBREL [Suspect]
     Indication: PRODUCT USED FOR UNKNOWN INDICATION
     Dosage: 50 mg, qwk
     Route: 058
  2. PREDNISONE [Concomitant]
     Dosage: 5 mg, UNK
  3. ARAVA [Concomitant]
     Dosage: 10 mg, UNK
  4. NAPROXEN 1 A PHARMA [Concomitant]
     Dosage: 250 mg, UNK
  5. OMEPRAZOLE [Concomitant]
     Dosage: 10 mg, UNK
  6. SIMVASTATIN [Concomitant]
     Dosage: 5 mg, UNK
  7. POTASSIUM [Concomitant]
  8. TRIAMTEREEN [Concomitant]
     Dosage: 25 mg, UNK
  9. HYDROCHLOROTHIAZIDE [Concomitant]
  10. VITAMIN E                          /00110501/ [Concomitant]

REACTIONS (2)
  - Increased tendency to bruise [Unknown]
  - Limb injury [Unknown]
